FAERS Safety Report 16234251 (Version 1)
Quarter: 2019Q2

REPORT INFORMATION
  Report Type: Spontaneous
  Country: RO (occurrence: RO)
  Receive Date: 20190424
  Receipt Date: 20190424
  Transmission Date: 20190711
  Serious: Yes (Other)
  Sender: FDA-Public Use
  Company Number: RO-PFIZER INC-2015400438

PATIENT
  Age: 55 Year
  Sex: Male
  Weight: 110 kg

DRUGS (2)
  1. SUTENT [Suspect]
     Active Substance: SUNITINIB MALATE
     Dosage: 50 MG, CYCLIC (DAILY, 2/1 SCHEDULE)
     Route: 048
     Dates: start: 201310, end: 201710
  2. SUTENT [Suspect]
     Active Substance: SUNITINIB MALATE
     Indication: METASTATIC RENAL CELL CARCINOMA
     Dosage: 50 MG, 1X/DAY, 4 WEEKS WITH 2 WEEKS PAUSE
     Route: 048
     Dates: start: 201210, end: 201310

REACTIONS (28)
  - Pollakiuria [Unknown]
  - Palmar-plantar erythrodysaesthesia syndrome [Recovered/Resolved]
  - Hypothyroidism [Recovered/Resolved]
  - Skin discolouration [Recovered/Resolved with Sequelae]
  - Hair colour changes [Recovered/Resolved with Sequelae]
  - Lower urinary tract symptoms [Recovered/Resolved]
  - Gastritis [Unknown]
  - Flatulence [Recovered/Resolved with Sequelae]
  - Back pain [Recovered/Resolved with Sequelae]
  - Diarrhoea [Recovered/Resolved with Sequelae]
  - Hypertension [Unknown]
  - Fatigue [Recovered/Resolved with Sequelae]
  - Dyspepsia [Unknown]
  - Dysphonia [Recovered/Resolved]
  - Haemorrhoids [Recovered/Resolved]
  - Rectal haemorrhage [Recovered/Resolved]
  - Haemorrhoidal haemorrhage [Recovered/Resolved]
  - Asthenia [Recovered/Resolved with Sequelae]
  - Vascular malformation [Unknown]
  - Slow speech [Recovered/Resolved]
  - Haemoptysis [Recovered/Resolved]
  - Dysuria [Unknown]
  - Pyrexia [Unknown]
  - Hypothyroidism [Recovered/Resolved]
  - Skin discolouration [Recovered/Resolved]
  - Chronic gastritis [Unknown]
  - Urinary tract infection [Unknown]
  - Oesophagitis [Unknown]

NARRATIVE: CASE EVENT DATE: 201210
